FAERS Safety Report 9378368 (Version 1)
Quarter: 2013Q3

REPORT INFORMATION
  Report Type: Report from Study
  Country: DE (occurrence: DE)
  Receive Date: 20130701
  Receipt Date: 20130701
  Transmission Date: 20140515
  Serious: Yes (Death)
  Sender: FDA-Public Use
  Company Number: DE-PFIZER INC-2013190765

PATIENT
  Age: 77 Year
  Sex: Male
  Weight: 100 kg

DRUGS (12)
  1. SOMAVERT [Suspect]
     Indication: ACROMEGALY
     Dosage: 20 MG, 7 INJECTIONS/WEEK
     Dates: start: 20110203
  2. METFORMIN [Concomitant]
     Indication: TYPE 2 DIABETES MELLITUS
     Dosage: UNK
     Route: 048
     Dates: start: 20101008
  3. AMILORIDE [Concomitant]
     Indication: CARDIAC FAILURE
     Dosage: UNK
     Route: 048
     Dates: start: 20090304
  4. ENALAPRIL [Concomitant]
     Indication: HYPERTENSION
     Dosage: UNK
     Route: 048
     Dates: start: 20070611
  5. SIMVASTATIN [Concomitant]
     Indication: LIPID METABOLISM DISORDER
     Dosage: UNK
     Route: 048
     Dates: start: 20070611
  6. ASS [Concomitant]
     Indication: ANGINA PECTORIS
     Dosage: UNK
     Route: 048
     Dates: start: 20050915
  7. TESTOGEL [Concomitant]
     Indication: BLOOD FOLLICLE STIMULATING HORMONE ABNORMAL
     Dosage: UNK
     Route: 003
     Dates: start: 19950101
  8. TESTOGEL [Concomitant]
     Indication: BLOOD LUTEINISING HORMONE ABNORMAL
  9. BROMOCRIPTINE [Concomitant]
     Dosage: UNK
     Route: 048
     Dates: start: 19900101
  10. HYDROCORTISONE [Concomitant]
     Indication: ADRENOCORTICOTROPIC HORMONE DEFICIENCY
     Dosage: UNK
     Route: 048
     Dates: start: 19821201
  11. LEVOTHYROXINE SODIUM [Concomitant]
     Indication: BLOOD THYROID STIMULATING HORMONE DECREASED
     Dosage: UNK
     Route: 048
     Dates: start: 19821201
  12. OCTREOTIDE ACETATE [Concomitant]
     Dosage: UNK
     Dates: start: 20100215, end: 20101108

REACTIONS (1)
  - Death [Fatal]
